FAERS Safety Report 5755038-9 (Version None)
Quarter: 2008Q2

REPORT INFORMATION
  Report Type: 
  Country: None (occurrence: None)
  Receive Date: 20080528
  Receipt Date: 20080528
  Transmission Date: 20081010
  Serious: No
  Sender: FDA-Public Use
  Company Number: None

PATIENT
  Age: 61 Year

DRUGS (1)
  1. LIPITOR [Suspect]

REACTIONS (2)
  - MOTOR DYSFUNCTION [None]
  - MUSCULAR WEAKNESS [None]
